FAERS Safety Report 6215832-7 (Version None)
Quarter: 2009Q2

REPORT INFORMATION
  Report Type: 
  Country: None (occurrence: None)
  Receive Date: 20090605
  Receipt Date: 20090526
  Transmission Date: 20091009
  Serious: Yes (Other)
  Sender: FDA-Public Use
  Company Number: DE-JNJFOC-20090502597

PATIENT
  Sex: Male
  Weight: 70.5 kg

DRUGS (3)
  1. PREZISTA [Suspect]
     Indication: HIV INFECTION
     Route: 048
  2. KIVEXA [Suspect]
     Indication: HIV INFECTION
     Route: 048
  3. NORVIR [Suspect]
     Indication: HIV INFECTION
     Route: 048

REACTIONS (4)
  - ENANTHEMA [None]
  - PAIN IN EXTREMITY [None]
  - PRURITUS [None]
  - RASH GENERALISED [None]
